FAERS Safety Report 10584819 (Version 1)
Quarter: 2014Q4

REPORT INFORMATION
  Report Type: Spontaneous
  Country: US (occurrence: None)
  Receive Date: 20141113
  Receipt Date: 20141113
  Transmission Date: 20150529
  Serious: Yes (Life-Threatening, Hospitalization, Other)
  Sender: FDA-Public Use
  Company Number: ADR-2014-02043

PATIENT
  Age: 67 Year
  Sex: Female

DRUGS (2)
  1. DILAUDID [Suspect]
     Active Substance: HYDROMORPHONE HYDROCHLORIDE
     Indication: PAIN
  2. BACLOFEN INTRATHECAL 700MCG/ML [Suspect]
     Active Substance: BACLOFEN
     Indication: PAIN

REACTIONS (6)
  - Unresponsive to stimuli [None]
  - Anaemia [None]
  - Abnormal behaviour [None]
  - Hepatic failure [None]
  - Renal failure [None]
  - Injury [None]
